FAERS Safety Report 16012695 (Version 1)
Quarter: 2019Q1

REPORT INFORMATION
  Report Type: Report from Study
  Country: RU (occurrence: RU)
  Receive Date: 20190227
  Receipt Date: 20190227
  Transmission Date: 20190418
  Serious: Yes (Other)
  Sender: FDA-Public Use
  Company Number: RU-ASTRAZENECA-2019SE30403

PATIENT
  Age: 70 Year
  Sex: Male
  Weight: 104 kg

DRUGS (4)
  1. RANEXA [Concomitant]
     Active Substance: RANOLAZINE
  2. CRESTOR [Suspect]
     Active Substance: ROSUVASTATIN CALCIUM
     Indication: CARDIOVASCULAR DISORDER
     Route: 048
     Dates: start: 1998
  3. UPERIO [Concomitant]
     Active Substance: SACUBITRIL\VALSARTAN
  4. BRILINTA [Suspect]
     Active Substance: TICAGRELOR
     Indication: MYOCARDIAL INFARCTION
     Route: 048
     Dates: start: 201811

REACTIONS (7)
  - Amnesia [Unknown]
  - Myocardial infarction [Recovered/Resolved]
  - Cerebral vasoconstriction [Unknown]
  - Fall [Recovered/Resolved]
  - Blood pressure decreased [Not Recovered/Not Resolved]
  - Head injury [Recovered/Resolved]
  - Intentional product misuse [Unknown]

NARRATIVE: CASE EVENT DATE: 201811
